FAERS Safety Report 16543233 (Version 1)
Quarter: 2019Q3

REPORT INFORMATION
  Report Type: Spontaneous
  Country: GB (occurrence: GB)
  Receive Date: 20190709
  Receipt Date: 20190709
  Transmission Date: 20191004
  Serious: Yes (Other)
  Sender: FDA-Public Use
  Company Number: GB-GLAXOSMITHKLINE-GB2019122347

PATIENT
  Age: 42 Year
  Sex: Female
  Weight: 71 kg

DRUGS (3)
  1. CERELLE [Concomitant]
     Active Substance: DESOGESTREL
     Indication: PRODUCT USED FOR UNKNOWN INDICATION
     Dosage: UNK
     Route: 065
  2. FLUOXETINE [Concomitant]
     Active Substance: FLUOXETINE HYDROCHLORIDE
     Indication: PRODUCT USED FOR UNKNOWN INDICATION
     Dosage: UNK
     Route: 065
  3. ACICLOVIR [Suspect]
     Active Substance: ACYCLOVIR
     Indication: ORAL MUCOSAL BLISTERING
     Dosage: 5000 MG, QD
     Route: 048
     Dates: start: 20190614, end: 20190616

REACTIONS (5)
  - Malaise [Recovering/Resolving]
  - Dizziness postural [Recovering/Resolving]
  - Coordination abnormal [Recovering/Resolving]
  - Asthenia [Not Recovered/Not Resolved]
  - Vision blurred [Recovering/Resolving]

NARRATIVE: CASE EVENT DATE: 20190616
